FAERS Safety Report 8279973 (Version 7)
Quarter: 2013Q2

REPORT INFORMATION
  Report Type: Spontaneous
  Country: US (occurrence: US)
  Receive Date: 20111208
  Receipt Date: 20130611
  Transmission Date: 20140414
  Serious: Yes (Other)
  Sender: FDA-Public Use
  Company Number: PHEH2011US010420

PATIENT
  Age: 80 Year
  Sex: Female

DRUGS (5)
  1. DIOVAN [Suspect]
     Dosage: 2 DF (80 MG), A DAY
  2. DIOVAN [Suspect]
     Dosage: 160 MG, UNK
  3. DIOVAN HCT [Suspect]
     Dosage: 1 DF (80\12.5 MG), QD
  4. LORTAB [Concomitant]
     Indication: PAIN
     Dosage: 500 MG, QD
  5. KEFLEX [Concomitant]
     Dosage: UNK UKN, UNK

REACTIONS (11)
  - Tooth infection [Unknown]
  - Alveolar osteitis [Unknown]
  - Impaired healing [Unknown]
  - Tooth disorder [Unknown]
  - Oral pain [Unknown]
  - Malaise [Unknown]
  - Dysphagia [Unknown]
  - Drug dispensing error [Unknown]
  - Arthritis [Unknown]
  - Tachycardia [Unknown]
  - Hypertension [Unknown]
